FAERS Safety Report 26179504 (Version 2)
Quarter: 2025Q4

REPORT INFORMATION
  Report Type: Spontaneous
  Country: MM (occurrence: MM)
  Receive Date: 20251219
  Receipt Date: 20251225
  Transmission Date: 20260118
  Serious: Yes (Life-Threatening, Hospitalization, Other)
  Sender: AUROBINDO
  Company Number: MM-MLMSERVICE-20251201-PI732262-00136-1

PATIENT
  Age: 53 Year
  Sex: Female

DRUGS (1)
  1. ESCITALOPRAM [Suspect]
     Active Substance: ESCITALOPRAM OXALATE
     Indication: Generalised anxiety disorder
     Dosage: 10 MILLIGRAM, DAILY
     Route: 061

REACTIONS (2)
  - Sinus arrest [Recovered/Resolved]
  - Syncope [Recovered/Resolved]
